FAERS Safety Report 24693220 (Version 2)
Quarter: 2024Q4

REPORT INFORMATION
  Report Type: Report from Study
  Country: US (occurrence: US)
  Receive Date: 20241203
  Receipt Date: 20241204
  Transmission Date: 20250114
  Serious: No
  Sender: HLS THERAPEUTICS
  Company Number: US-HLS-202401660

PATIENT
  Age: 77 Year
  Sex: Female

DRUGS (2)
  1. CLOZAPINE [Suspect]
     Active Substance: CLOZAPINE
     Indication: Tardive dyskinesia
     Route: 065
  2. CLOZAPINE [Suspect]
     Active Substance: CLOZAPINE
     Indication: Parkinson^s disease psychosis
     Route: 065

REACTIONS (2)
  - Neutrophil count increased [Unknown]
  - Off label use [Unknown]

NARRATIVE: CASE EVENT DATE: 20241119
